FAERS Safety Report 23284514 (Version 1)
Quarter: 2023Q4

REPORT INFORMATION
  Report Type: Spontaneous
  Country: US (occurrence: US)
  Receive Date: 20231211
  Receipt Date: 20231211
  Transmission Date: 20240110
  Serious: No
  Sender: FDA-Public Use
  Company Number: US-TPU-TPU-2023-00758

PATIENT
  Sex: Female

DRUGS (2)
  1. LIDOCAINE PATCH [Suspect]
     Active Substance: LIDOCAINE
     Indication: Post herpetic neuralgia
     Route: 061
     Dates: end: 202304
  2. LIDODERM [Concomitant]
     Active Substance: LIDOCAINE
     Route: 061

REACTIONS (1)
  - Application site rash [Recovered/Resolved]
